FAERS Safety Report 25847624 (Version 1)
Quarter: 2025Q3

REPORT INFORMATION
  Report Type: Spontaneous
  Country: EU (occurrence: EU)
  Receive Date: 20250925
  Receipt Date: 20250925
  Transmission Date: 20251021
  Serious: Yes (Hospitalization)
  Sender: ROCHE
  Company Number: None

PATIENT
  Age: 92 Year
  Sex: Female
  Weight: 50 kg

DRUGS (18)
  1. VALGANCICLOVIR [Suspect]
     Active Substance: VALGANCICLOVIR
     Indication: Cytomegalovirus infection reactivation
     Route: 065
     Dates: start: 20240416, end: 20240430
  2. VALGANCICLOVIR [Suspect]
     Active Substance: VALGANCICLOVIR
     Route: 065
  3. ELRANATAMAB [Suspect]
     Active Substance: ELRANATAMAB
     Indication: Plasma cell myeloma
     Route: 065
     Dates: start: 20240130
  4. ELRANATAMAB [Suspect]
     Active Substance: ELRANATAMAB
     Route: 065
     Dates: start: 20240202
  5. ELRANATAMAB [Suspect]
     Active Substance: ELRANATAMAB
     Route: 065
     Dates: start: 20240206
  6. ELRANATAMAB [Suspect]
     Active Substance: ELRANATAMAB
     Route: 065
     Dates: start: 20240213
  7. ELRANATAMAB [Suspect]
     Active Substance: ELRANATAMAB
     Route: 065
     Dates: start: 20240220
  8. ELRANATAMAB [Suspect]
     Active Substance: ELRANATAMAB
     Route: 065
     Dates: start: 20240409
  9. ELRANATAMAB [Suspect]
     Active Substance: ELRANATAMAB
     Route: 065
     Dates: start: 20240521, end: 20240521
  10. LEUCOVORIN CALCIUM [Concomitant]
     Active Substance: LEUCOVORIN CALCIUM
     Route: 065
  11. BACTRIM [Concomitant]
     Active Substance: SULFAMETHOXAZOLE\TRIMETHOPRIM
     Route: 065
  12. VALACYCLOVIR HYDROCHLORIDE [Concomitant]
     Active Substance: VALACYCLOVIR HYDROCHLORIDE
     Route: 065
  13. LERCANIDIPINE HYDROCHLORIDE [Concomitant]
     Active Substance: LERCANIDIPINE HYDROCHLORIDE
     Route: 065
  14. NEBIVOLOL [Concomitant]
     Active Substance: NEBIVOLOL
     Route: 065
  15. KARDEGIC [Concomitant]
     Active Substance: ASPIRIN DL-LYSINE
     Route: 065
  16. LANSOPRAZOLE [Concomitant]
     Active Substance: LANSOPRAZOLE
     Route: 065
  17. ACETAMINOPHEN [Concomitant]
     Active Substance: ACETAMINOPHEN
     Route: 065
  18. FILGRASTIM [Concomitant]
     Active Substance: FILGRASTIM
     Route: 065

REACTIONS (3)
  - Bacterial diarrhoea [Recovered/Resolved]
  - Candida infection [Unknown]
  - Off label use [Unknown]

NARRATIVE: CASE EVENT DATE: 20240416
